FAERS Safety Report 10329899 (Version 1)
Quarter: 2014Q3

REPORT INFORMATION
  Report Type: Spontaneous
  Country: US (occurrence: US)
  Receive Date: 20140721
  Receipt Date: 20140721
  Transmission Date: 20150326
  Serious: Yes (Hospitalization)
  Sender: FDA-Public Use
  Company Number: US-GLAXOSMITHKLINE-A1081088A

PATIENT
  Age: 75 Year
  Sex: Female

DRUGS (14)
  1. HYDROCODONE [Concomitant]
     Active Substance: HYDROCODONE
  2. MAGNESIUM OXIDE. [Concomitant]
     Active Substance: MAGNESIUM OXIDE
  3. CYMBALTA [Concomitant]
     Active Substance: DULOXETINE HYDROCHLORIDE
  4. ADVAIR HFA [Suspect]
     Active Substance: FLUTICASONE PROPIONATE\SALMETEROL XINAFOATE
     Indication: CHRONIC OBSTRUCTIVE PULMONARY DISEASE
     Dosage: 1PUFF TWICE PER DAY
     Route: 055
     Dates: start: 2004
  5. ALLOPURINOL. [Concomitant]
     Active Substance: ALLOPURINOL
  6. ALLEGRA [Concomitant]
     Active Substance: FEXOFENADINE HYDROCHLORIDE
  7. THEOPHYLLINE [Concomitant]
     Active Substance: THEOPHYLLINE
  8. OMEPRAZOLE. [Concomitant]
     Active Substance: OMEPRAZOLE
  9. LIPITOR [Concomitant]
     Active Substance: ATORVASTATIN CALCIUM
  10. FOLATE [Concomitant]
     Active Substance: FOLATE SODIUM
  11. DEMADEX [Concomitant]
     Active Substance: TORSEMIDE
  12. KDUR [Concomitant]
  13. MVI [Concomitant]
     Active Substance: VITAMINS
  14. FENTANYL. [Concomitant]
     Active Substance: FENTANYL

REACTIONS (2)
  - Oedema [Recovering/Resolving]
  - Blood parathyroid hormone increased [Recovering/Resolving]

NARRATIVE: CASE EVENT DATE: 20140627
